FAERS Safety Report 6842595-4 (Version None)
Quarter: 2010Q3

REPORT INFORMATION
  Report Type: 
  Country: None (occurrence: None)
  Receive Date: 20100714
  Receipt Date: 20070731
  Transmission Date: 20110219
  Serious: No
  Sender: FDA-Public Use
  Company Number: US-PFIZER INC-2007064959

PATIENT
  Sex: Male

DRUGS (3)
  1. CHANTIX [Suspect]
     Indication: SMOKING CESSATION THERAPY
     Route: 048
     Dates: start: 20070701
  2. VICODIN [Concomitant]
     Indication: BACK DISORDER
  3. LEXAPRO [Concomitant]
     Indication: DEPRESSION

REACTIONS (4)
  - DIARRHOEA [None]
  - FATIGUE [None]
  - MALAISE [None]
  - NAUSEA [None]
